FAERS Safety Report 14993505 (Version 3)
Quarter: 2025Q4

REPORT INFORMATION
  Report Type: Spontaneous
  Country: EU (occurrence: EU)
  Receive Date: 20180610
  Receipt Date: 20251022
  Transmission Date: 20260118
  Serious: Yes (Other)
  Sender: AUROBINDO
  Company Number: EU-002147023-PHHY2018ES005840

PATIENT
  Age: 74 Year
  Sex: Male

DRUGS (11)
  1. ARIPIPRAZOLE [Interacting]
     Active Substance: ARIPIPRAZOLE
     Indication: Product used for unknown indication
     Dosage: UNK
     Route: 065
  2. QUETIAPINE [Interacting]
     Active Substance: QUETIAPINE
     Indication: Product used for unknown indication
     Dosage: 50 MILLIGRAM, ONCE A DAY(50 MG, QD)
     Route: 065
  3. QUETIAPINE [Interacting]
     Active Substance: QUETIAPINE
     Dosage: 280 MILLIGRAM PER LITRE
     Route: 065
  4. QUETIAPINE [Interacting]
     Active Substance: QUETIAPINE
     Dosage: 500 MILLIGRAM, ONCE A DAY
     Route: 065
  5. VALPROIC ACID [Interacting]
     Active Substance: VALPROIC ACID
     Indication: Product used for unknown indication
     Dosage: 2400 MILLIGRAM, ONCE A DAY(2400 MG, QD)
     Route: 065
  6. VALPROIC ACID [Interacting]
     Active Substance: VALPROIC ACID
     Dosage: 900 MILLIGRAM, ONCE A DAY(900 MG, QD)
     Route: 065
  7. VALPROIC ACID [Interacting]
     Active Substance: VALPROIC ACID
     Dosage: 1600 MILLIGRAM, ONCE A DAY(1600 MG, QD)
     Route: 065
  8. LORAZEPAM [Suspect]
     Active Substance: LORAZEPAM
     Indication: Product used for unknown indication
     Route: 065
  9. ALFUZOSIN [Concomitant]
     Active Substance: ALFUZOSIN
     Indication: Product used for unknown indication
     Dosage: UNK
     Route: 065
  10. FINASTERIDE [Concomitant]
     Active Substance: FINASTERIDE
     Indication: Product used for unknown indication
     Dosage: UNK
     Route: 065
  11. LITHIUM [Concomitant]
     Active Substance: LITHIUM
     Indication: Product used for unknown indication
     Dosage: UNK
     Route: 065

REACTIONS (7)
  - Coma [Recovered/Resolved]
  - Depressed level of consciousness [Recovered/Resolved]
  - Blood thyroid stimulating hormone decreased [Recovered/Resolved]
  - Altered state of consciousness [Recovered/Resolved]
  - Parkinsonism [Recovered/Resolved]
  - Dehydration [Unknown]
  - Drug interaction [Unknown]
